FAERS Safety Report 5673156-0 (Version None)
Quarter: 2008Q1

REPORT INFORMATION
  Report Type: 
  Country: None (occurrence: None)
  Receive Date: 20080319
  Receipt Date: 20080314
  Transmission Date: 20080703
  Serious: Yes (Other)
  Sender: FDA-Public Use
  Company Number: GB-BRISTOL-MYERS SQUIBB COMPANY-14118012

PATIENT
  Sex: Male

DRUGS (2)
  1. MODECATE [Suspect]
  2. LITHIUM CARBONATE [Suspect]

REACTIONS (2)
  - RENAL IMPAIRMENT [None]
  - THERAPEUTIC AGENT TOXICITY [None]
